FAERS Safety Report 20856297 (Version 1)
Quarter: 2022Q2

REPORT INFORMATION
  Report Type: Report from Study
  Country: JP (occurrence: JP)
  Receive Date: 20220520
  Receipt Date: 20220520
  Transmission Date: 20220720
  Serious: Yes (Other)
  Sender: FDA-Public Use
  Company Number: JP-CELGENE-JPN-20190904165

PATIENT
  Age: 53 Year
  Sex: Female

DRUGS (17)
  1. APREMILAST [Suspect]
     Active Substance: APREMILAST
     Indication: Psoriasis
     Dosage: 10 MILLIGRAM ONCE DAILY
     Route: 048
     Dates: start: 20180619
  2. APREMILAST [Suspect]
     Active Substance: APREMILAST
     Indication: Psoriatic arthropathy
     Dosage: 20 MILLIGRAM DAILY (TWO DIVIDED DOSES)
     Route: 048
     Dates: start: 20180620
  3. APREMILAST [Suspect]
     Active Substance: APREMILAST
     Dosage: 30 MILLIGRAM DAILY (TWO DIVIDED DOSES)
     Route: 048
     Dates: start: 20210621
  4. APREMILAST [Suspect]
     Active Substance: APREMILAST
     Dosage: 40 MILLIGRAM DAILY (TWO DIVIDED DOSES)
     Route: 048
     Dates: start: 20180622
  5. APREMILAST [Suspect]
     Active Substance: APREMILAST
     Dosage: 50 MILLIGRAM DAILY (TWO DIVIDED DOSES)
     Route: 048
     Dates: start: 20180623
  6. APREMILAST [Suspect]
     Active Substance: APREMILAST
     Dosage: 60 MILLIGRAM DAILY (TWO DIVIDED DOSES)
     Route: 048
     Dates: start: 20180624, end: 20190604
  7. APREMILAST [Suspect]
     Active Substance: APREMILAST
     Dosage: 60 MILLIGRAM DAILY (TWO DIVIDED DOSES)
     Route: 048
     Dates: start: 20190611
  8. BETAMETHASONE\CALCIPOTRIENE [Concomitant]
     Active Substance: BETAMETHASONE\CALCIPOTRIENE
     Indication: Psoriasis
     Dosage: APPROPRIATE DOSE
  9. CLOBETASOL PROPIONATE [Concomitant]
     Active Substance: CLOBETASOL PROPIONATE
     Indication: Psoriasis
     Dosage: APPROPRIATE DOSE
  10. METHOTREXATE [Concomitant]
     Active Substance: METHOTREXATE
     Indication: Lymphoma
     Dosage: APPROPRIATE DOSE
     Route: 047
  11. LEVOFLOXACIN [Concomitant]
     Active Substance: LEVOFLOXACIN
     Indication: Lymphoma
     Dosage: APPROPRIATE DOSE
     Route: 047
  12. Rinderon [Concomitant]
     Indication: Lymphoma
     Dosage: APPROPRIATE DOSE
     Route: 047
  13. RITUXAN [Concomitant]
     Active Substance: RITUXIMAB
     Indication: Lymphoma
     Dosage: 580 MILLIGRAM, QD
  14. DOXORUBICIN [Concomitant]
     Active Substance: DOXORUBICIN
     Indication: Lymphoma
     Dosage: 78 MILLIGRAM, QD
  15. ONCOVIN [Concomitant]
     Active Substance: VINCRISTINE SULFATE
     Indication: Lymphoma
     Dosage: 2 MILLIGRAM, QD
  16. GRANISETRON [Concomitant]
     Active Substance: GRANISETRON
     Indication: Lymphoma
     Dosage: 3 MILLIGRAM, QD
  17. CYCLOPHOSPHAMIDE [Concomitant]
     Active Substance: CYCLOPHOSPHAMIDE
     Indication: Lymphoma
     Dosage: 1.15 GRAM, QD

REACTIONS (1)
  - Lymphoma [Not Recovered/Not Resolved]

NARRATIVE: CASE EVENT DATE: 20190613
